FAERS Safety Report 22130604 (Version 1)
Quarter: 2023Q1

REPORT INFORMATION
  Report Type: Spontaneous
  Country: JP (occurrence: JP)
  Receive Date: 20230323
  Receipt Date: 20230323
  Transmission Date: 20230417
  Serious: Yes (Other)
  Sender: FDA-Public Use
  Company Number: JP-PFIZER INC-PV202300051307

PATIENT
  Age: 54 Year
  Sex: Male
  Weight: 62.8 kg

DRUGS (11)
  1. VFEND [Interacting]
     Active Substance: VORICONAZOLE
     Indication: Pneumonia fungal
     Dosage: 600 MG/DAY, DIVIDED INTO TWICE
     Route: 048
     Dates: start: 20220412, end: 20220412
  2. VFEND [Interacting]
     Active Substance: VORICONAZOLE
     Dosage: 400 MG/DAY, DIVIDED INTO TWICE
     Route: 048
     Dates: start: 20220413, end: 20220419
  3. VFEND [Interacting]
     Active Substance: VORICONAZOLE
     Dosage: DOSE REDUCED
     Route: 048
     Dates: start: 20220420, end: 20220420
  4. VFEND [Interacting]
     Active Substance: VORICONAZOLE
     Dosage: 200 MG/DAY, DIVIDED INTO TWICE
     Route: 048
     Dates: start: 20220421, end: 202204
  5. VFEND [Interacting]
     Active Substance: VORICONAZOLE
     Dosage: INCREASED TO 300 MG/DAY, DIVIDED INTO TWICE
     Route: 048
     Dates: start: 20220428, end: 202205
  6. VFEND [Interacting]
     Active Substance: VORICONAZOLE
     Dosage: 200 MG/DAY, DIVIDED INTO TWICE
     Route: 048
     Dates: start: 20220517
  7. DAYVIGO [Interacting]
     Active Substance: LEMBOREXANT
     Dosage: UNK
     Route: 048
     Dates: start: 20220404, end: 20220418
  8. LANSOPRAZOLE [Concomitant]
     Active Substance: LANSOPRAZOLE
     Dosage: UNK
     Route: 048
  9. MIYA-BM [Concomitant]
     Active Substance: CLOSTRIDIUM BUTYRICUM SPORES STRAIN M-55
     Route: 048
  10. CARBOCYSTEINE [Concomitant]
     Active Substance: CARBOCYSTEINE
     Dosage: UNK
     Route: 048
     Dates: start: 20220404
  11. AMBROXOL HYDROCHLORIDE [Concomitant]
     Active Substance: AMBROXOL HYDROCHLORIDE
     Dosage: UNK
     Route: 048
     Dates: start: 20220404

REACTIONS (4)
  - Gamma-glutamyltransferase increased [Recovering/Resolving]
  - Blood alkaline phosphatase increased [Recovering/Resolving]
  - Hepatic function abnormal [Recovering/Resolving]
  - Drug interaction [Unknown]

NARRATIVE: CASE EVENT DATE: 20220419
